FAERS Safety Report 9716370 (Version 1)
Quarter: 2013Q4

REPORT INFORMATION
  Report Type: Spontaneous
  Country: US (occurrence: None)
  Receive Date: 20131126
  Receipt Date: 20131126
  Transmission Date: 20140711
  Serious: Yes (Hospitalization)
  Sender: FDA-Public Use
  Company Number: None

PATIENT
  Age: 76 Year
  Sex: Male
  Weight: 100 kg

DRUGS (2)
  1. CASODEX [Suspect]
  2. ZOLADEX [Concomitant]

REACTIONS (3)
  - Spinal compression fracture [None]
  - Pulmonary embolism [None]
  - Immobile [None]
